FAERS Safety Report 17895028 (Version 1)
Quarter: 2020Q2

REPORT INFORMATION
  Report Type: Spontaneous
  Country: US (occurrence: US)
  Receive Date: 20200615
  Receipt Date: 20200615
  Transmission Date: 20200714
  Serious: No
  Sender: FDA-Public Use
  Company Number: US-PFIZER INC-2020229663

PATIENT
  Sex: Female

DRUGS (2)
  1. ADVIL [Suspect]
     Active Substance: IBUPROFEN
     Dosage: 800 MG, 2X/DAY
  2. ADVIL [Suspect]
     Active Substance: IBUPROFEN
     Dosage: 800 MG, DAILY

REACTIONS (1)
  - Drug ineffective [Unknown]
